FAERS Safety Report 25763700 (Version 1)
Quarter: 2025Q3

REPORT INFORMATION
  Report Type: Spontaneous
  Country: US (occurrence: US)
  Receive Date: 20250905
  Receipt Date: 20250905
  Transmission Date: 20251020
  Serious: No
  Sender: DOMPE FARMACEUTICI
  Company Number: US-FARMAPROD-202411-3934

PATIENT
  Sex: Female
  Weight: 48.99 kg

DRUGS (10)
  1. OXERVATE [Suspect]
     Active Substance: CENEGERMIN-BKBJ
     Indication: Neurotrophic keratopathy
     Route: 047
     Dates: start: 20241105
  2. OXERVATE [Suspect]
     Active Substance: CENEGERMIN-BKBJ
  3. CYCLOSPORINE [Concomitant]
     Active Substance: CYCLOSPORINE
  4. CLOPIDOGREL [Concomitant]
     Active Substance: CLOPIDOGREL BISULFATE
  5. BOTOX [Concomitant]
     Active Substance: ONABOTULINUMTOXINA
  6. BOTOX [Concomitant]
     Active Substance: ONABOTULINUMTOXINA
  7. ATORVASTATIN CALCIUM [Concomitant]
     Active Substance: ATORVASTATIN CALCIUM
  8. AZELASTINE HYDROCHLORIDE [Concomitant]
     Active Substance: AZELASTINE HYDROCHLORIDE
  9. VALSARTAN [Concomitant]
     Active Substance: VALSARTAN
  10. PROLIA [Concomitant]
     Active Substance: DENOSUMAB

REACTIONS (4)
  - Eyelid irritation [Unknown]
  - Ocular hyperaemia [Unknown]
  - Eye pain [Not Recovered/Not Resolved]
  - Eyelid pain [Unknown]
